FAERS Safety Report 8487905-X (Version None)
Quarter: 2012Q3

REPORT INFORMATION
  Report Type: 
  Country: None (occurrence: None)
  Receive Date: 20120705
  Receipt Date: 20120628
  Transmission Date: 20120928
  Serious: Yes (Other)
  Sender: FDA-Public Use
  Company Number: US-PFIZER INC-2012156162

PATIENT
  Sex: Female
  Weight: 79.8 kg

DRUGS (20)
  1. DEPAKOTE [Concomitant]
     Indication: NERVE INJURY
     Dosage: 500 MG,DAILY
  2. FUROSEMIDE [Concomitant]
     Indication: PROPHYLAXIS
     Dosage: 40 MG, DAILY
     Route: 048
  3. FOLIC ACID [Concomitant]
     Indication: CARDIAC DISORDER
     Dosage: 400 UG,DAILY
  4. ZOLOFT [Suspect]
     Indication: DEPRESSION
     Dosage: 50 MG, 1X/DAY
     Route: 048
     Dates: start: 20120222, end: 20120228
  5. ACETYLSALICYLIC ACID [Concomitant]
     Indication: CARDIAC OPERATION
     Dosage: 81 MG,DAILY
  6. LIPITOR [Concomitant]
     Indication: BLOOD CHOLESTEROL INCREASED
     Dosage: 80 MG, DAILY
  7. DETROL [Concomitant]
     Dosage: UNK
  8. METOPROLOL SUCCINATE [Concomitant]
     Indication: HYPERTENSION
     Dosage: 50 MG,DAILY
     Route: 048
  9. PENTOXIFYLLINE [Concomitant]
     Indication: PERIPHERAL ARTERIAL OCCLUSIVE DISEASE
     Dosage: 400 MG, 3X/DAY
  10. POTASSIUM CHLORIDE [Concomitant]
     Indication: MINERAL SUPPLEMENTATION
     Dosage: 20 MG, DAILY
  11. VITAMIN E [Concomitant]
     Indication: CARDIAC DISORDER
     Dosage: 800 IU, DAILY
     Route: 048
  12. THIOTHIXENE HYDROCHLORIDE [Concomitant]
     Indication: BIPOLAR DISORDER
     Dosage: 10 MG, DAILY
     Route: 048
  13. AMLODIPINE BESILATE [Concomitant]
     Indication: HYPERTENSION
     Dosage: 5 MG,DAILY
     Route: 048
  14. CALCIUM CARBONATE/COLECALCIFEROL [Concomitant]
     Indication: BONE DISORDER
     Dosage: 1200 MG, DAILY
     Route: 048
  15. ACETYLSALICYLIC ACID [Concomitant]
     Dosage: 325 MG, DAILY
  16. CARBAMAZEPINE [Concomitant]
     Indication: BIPOLAR DISORDER
     Dosage: 2 TABLETS OF 200 MG IN MORNING, 1 TABLET OF 200 MG IN AFTERNOON, 3 TABLETS OF 200 MG AT NIGHT
     Route: 048
  17. CARBAMAZEPINE [Concomitant]
     Indication: SCHIZOPHRENIA, PARANOID TYPE
  18. SYNTHROID [Concomitant]
     Indication: THYROID DISORDER
     Dosage: 100 UG,DAILY
  19. MULTI-VITAMINS [Concomitant]
     Indication: SUPPLEMENTATION THERAPY
     Dosage: UNK,DAILY
  20. GLUCOSAMINE [Concomitant]
     Indication: BONE DISORDER
     Dosage: 1000 MG, 2X/DAY

REACTIONS (7)
  - STRABISMUS [None]
  - DIZZINESS [None]
  - EYE SWELLING [None]
  - DEPRESSION [None]
  - TOBACCO USER [None]
  - DRUG INTOLERANCE [None]
  - FEELING ABNORMAL [None]
